FAERS Safety Report 11107220 (Version 1)
Quarter: 2015Q2

REPORT INFORMATION
  Report Type: Spontaneous
  Country: US (occurrence: US)
  Receive Date: 20150512
  Receipt Date: 20150512
  Transmission Date: 20150821
  Serious: No
  Sender: FDA-Public Use
  Company Number: US-ELI_LILLY_AND_COMPANY-US201505003989

PATIENT
  Sex: Female

DRUGS (4)
  1. ZOLOFT [Concomitant]
     Active Substance: SERTRALINE HYDROCHLORIDE
     Route: 065
  2. PROZAC [Suspect]
     Active Substance: FLUOXETINE HYDROCHLORIDE
     Dosage: 20 MG, QOD
     Route: 065
     Dates: start: 19980528
  3. PROZAC [Suspect]
     Active Substance: FLUOXETINE HYDROCHLORIDE
     Indication: DYSTHYMIC DISORDER
     Dosage: 20 MG, QD
     Route: 065
     Dates: start: 19980428, end: 19980528
  4. PROZAC [Suspect]
     Active Substance: FLUOXETINE HYDROCHLORIDE
     Dosage: 40 MG, QOD
     Route: 065
     Dates: start: 19980528

REACTIONS (2)
  - Gestational diabetes [Unknown]
  - Maternal exposure during pregnancy [Recovered/Resolved]
